FAERS Safety Report 9493304 (Version 2)
Quarter: 2013Q3

REPORT INFORMATION
  Report Type: Report from Study
  Country: ES (occurrence: ES)
  Receive Date: 20130902
  Receipt Date: 20130902
  Transmission Date: 20140515
  Serious: Yes (Hospitalization)
  Sender: FDA-Public Use
  Company Number: PHHO2011ES10276

PATIENT
  Age: 75 Year
  Sex: Male
  Weight: 97.5 kg

DRUGS (5)
  1. ALISKIREN [Suspect]
     Indication: CARDIOVASCULAR DISORDER
     Route: 048
     Dates: start: 20090731, end: 20110615
  2. FUROSEMIDE [Suspect]
     Indication: HYPERTENSION
     Dosage: 1.5 MG, QD
     Route: 048
     Dates: start: 20110217, end: 20110614
  3. CANDESARTAN [Concomitant]
     Indication: HYPERTENSION
     Dosage: 32 MG, QD
     Route: 048
     Dates: start: 20110217
  4. SITAGLIPTIN [Concomitant]
     Indication: DIABETES MELLITUS
     Dosage: 100 MG, QD
     Route: 048
     Dates: start: 20110217, end: 20110614
  5. LERCANIDIPINE [Concomitant]
     Indication: HYPERTENSION
     Dosage: 20 MG, QD
     Route: 048
     Dates: start: 20110217

REACTIONS (3)
  - Renal failure chronic [Recovered/Resolved]
  - Sepsis [Recovering/Resolving]
  - Diarrhoea infectious [Recovered/Resolved]
